FAERS Safety Report 21285728 (Version 1)
Quarter: 2022Q3

REPORT INFORMATION
  Report Type: Spontaneous
  Country: US (occurrence: None)
  Receive Date: 20220901
  Receipt Date: 20220901
  Transmission Date: 20221027
  Serious: Yes (Hospitalization)
  Sender: FDA-Public Use
  Company Number: None

PATIENT
  Sex: Female

DRUGS (2)
  1. TOBRAMYCIN INHALATION SOLUTION [Suspect]
     Active Substance: TOBRAMYCIN
     Indication: Cystic fibrosis
     Dosage: TOBRAMYCIN: TWICE DAILY FOR 28 DAYS ON FOLLOWED BY 28 DAYS OFF?
     Route: 055
     Dates: start: 20200923
  2. PULMOZYME [Suspect]
     Active Substance: DORNASE ALFA
     Indication: Cystic fibrosis
     Dosage: 2.5MG ONCE DAILY INHALATION
     Route: 055
     Dates: start: 20150425

REACTIONS (1)
  - Hospitalisation [None]
